FAERS Safety Report 7505989-X (Version None)
Quarter: 2011Q2

REPORT INFORMATION
  Report Type: 
  Country: None (occurrence: None)
  Receive Date: 20110526
  Receipt Date: 20110518
  Transmission Date: 20111010
  Serious: Yes (Death)
  Sender: FDA-Public Use
  Company Number: FI-ROCHE-777862

PATIENT
  Sex: Male

DRUGS (1)
  1. XELODA [Suspect]
     Dosage: FREQUENCY: 1500 MG X 2
     Route: 048
     Dates: start: 20101229

REACTIONS (1)
  - DEATH [None]
